FAERS Safety Report 15700884 (Version 1)
Quarter: 2018Q4

REPORT INFORMATION
  Report Type: Spontaneous
  Country: US (occurrence: US)
  Receive Date: 20181207
  Receipt Date: 20181207
  Transmission Date: 20190205
  Serious: No
  Sender: FDA-Public Use
  Company Number: US-JUBILANT CADISTA PHARMACEUTICALS-2018JUB00330

PATIENT
  Age: 53 Year
  Sex: Female
  Weight: 112.02 kg

DRUGS (10)
  1. SIMVASTATIN. [Concomitant]
     Active Substance: SIMVASTATIN
  2. METHYLPREDNISOLONE. [Suspect]
     Active Substance: METHYLPREDNISOLONE
     Indication: MENINGIOMA
     Dosage: 1 MG, 1X/DAY
     Route: 048
     Dates: start: 20180801, end: 20180802
  3. AMLODIPINE [Concomitant]
     Active Substance: AMLODIPINE BESYLATE
  4. VITAMIN E [Concomitant]
     Active Substance: .ALPHA.-TOCOPHEROL
  5. ^HERBA-SOMETHING^ [Concomitant]
  6. METFORMIN [Concomitant]
     Active Substance: METFORMIN HYDROCHLORIDE
  7. CLINDAMYCIN. [Concomitant]
     Active Substance: CLINDAMYCIN
  8. VITAMIN D [Concomitant]
     Active Substance: CHOLECALCIFEROL
  9. TOPIRAMATE. [Concomitant]
     Active Substance: TOPIRAMATE
  10. HCTZ [Concomitant]
     Active Substance: HYDROCHLOROTHIAZIDE

REACTIONS (4)
  - Chest discomfort [Not Recovered/Not Resolved]
  - Off label use [Recovered/Resolved]
  - Somnolence [Recovering/Resolving]
  - Headache [Not Recovered/Not Resolved]

NARRATIVE: CASE EVENT DATE: 20180801
